FAERS Safety Report 26094284 (Version 1)
Quarter: 2025Q4

REPORT INFORMATION
  Report Type: Spontaneous
  Country: EU (occurrence: EU)
  Receive Date: 20251126
  Receipt Date: 20251126
  Transmission Date: 20260118
  Serious: Yes (Hospitalization, Other)
  Sender: PFIZER
  Company Number: EU-HIKMA PHARMACEUTICALS USA INC.-FR-H14001-25-12012

PATIENT
  Age: 63 Year
  Sex: Female

DRUGS (10)
  1. METHOTREXATE SODIUM [Suspect]
     Active Substance: METHOTREXATE SODIUM
     Indication: Diffuse large B-cell lymphoma
     Dosage: UNK (2 ADMINISTRATIONS)
     Route: 065
     Dates: start: 20210517, end: 20210531
  2. DOXORUBICIN HYDROCHLORIDE [Suspect]
     Active Substance: DOXORUBICIN HYDROCHLORIDE
     Indication: Diffuse large B-cell lymphoma
     Dosage: UNK, CYCLIC (1 CYCLE OF CHOP)
     Route: 042
     Dates: start: 20210219, end: 20210429
  3. VINCRISTINE SULFATE [Suspect]
     Active Substance: VINCRISTINE SULFATE
     Indication: Diffuse large B-cell lymphoma
     Dosage: UNK, CYCLIC (1 CYCLE OF CHOP)
     Route: 065
     Dates: start: 20210219
  4. RITUXIMAB [Suspect]
     Active Substance: RITUXIMAB
     Indication: Diffuse large B-cell lymphoma
     Dosage: UNK, CYCLIC (4 CYCLES OF R-HOLOXAN)
     Route: 065
     Dates: start: 20210615, end: 20210810
  5. ETOPOSIDE [Suspect]
     Active Substance: ETOPOSIDE
     Indication: Diffuse large B-cell lymphoma
     Dosage: UNK, CYCLIC  (4 CYCLES OF R-HOLOXAN)
     Route: 042
     Dates: start: 20210615, end: 20210810
  6. BLEOMYCIN [Suspect]
     Active Substance: BLEOMYCIN SULFATE
     Indication: Diffuse large B-cell lymphoma
     Dosage: UNK, CYCLIC (4 CYCLES OF R-ACVBP)
     Route: 065
     Dates: start: 20210219, end: 20210429
  7. PREDNISONE [Suspect]
     Active Substance: PREDNISONE
     Indication: Diffuse large B-cell lymphoma
     Dosage: UNK, CYCLIC (1 CYCLE OF CHOP, 4 CYCLES OF R-ACVBP)
     Route: 065
     Dates: start: 20210219, end: 20210429
  8. CYCLOPHOSPHAMIDE [Suspect]
     Active Substance: CYCLOPHOSPHAMIDE
     Indication: Diffuse large B-cell lymphoma
     Dosage: UNK, CYCLIC (1 CYCLE OF CHOP, 4 CYCLES OF R-ACVBP)
     Route: 065
     Dates: start: 20210219
  9. IFOSFAMIDE [Suspect]
     Active Substance: IFOSFAMIDE
     Indication: Diffuse large B-cell lymphoma
     Dosage: UNK, CYCLIC (4 CYCLES OF R-HOLOXAN)
     Route: 042
     Dates: start: 20210615, end: 20210810
  10. VINDESINE [Suspect]
     Active Substance: VINDESINE
     Indication: Diffuse large B-cell lymphoma
     Dosage: UNK, CYCLIC (4 CYCLES OF R-ACVBP)
     Route: 065
     Dates: start: 20210219, end: 20210429

REACTIONS (1)
  - Dilated cardiomyopathy [Not Recovered/Not Resolved]

NARRATIVE: CASE EVENT DATE: 20250701
